FAERS Safety Report 12462997 (Version 1)
Quarter: 2016Q2

REPORT INFORMATION
  Report Type: Spontaneous
  Country: US (occurrence: US)
  Receive Date: 20160614
  Receipt Date: 20160614
  Transmission Date: 20160815
  Serious: No
  Sender: FDA-Public Use
  Company Number: US-JNJFOC-20160507907

PATIENT
  Age: 43 Year
  Sex: Female
  Weight: 66.23 kg

DRUGS (2)
  1. STELARA [Suspect]
     Active Substance: USTEKINUMAB
     Indication: PSORIASIS
     Dosage: 90 MG, SYRINGE, EVERY 3 MONTHS FOR??THE FIRST 2 INJECTIONS, AND THEN 45 MG EVERY 6 MONTHS
     Route: 058
     Dates: start: 201603
  2. STELARA [Suspect]
     Active Substance: USTEKINUMAB
     Indication: PSORIASIS
     Route: 058

REACTIONS (3)
  - Off label use [Unknown]
  - Alopecia [Not Recovered/Not Resolved]
  - Inappropriate schedule of drug administration [Unknown]

NARRATIVE: CASE EVENT DATE: 201603
